FAERS Safety Report 10029356 (Version 2)
Quarter: 2014Q1

REPORT INFORMATION
  Report Type: Report from Study
  Country: BR (occurrence: BR)
  Receive Date: 20140322
  Receipt Date: 20140322
  Transmission Date: 20141002
  Serious: Yes (Other)
  Sender: FDA-Public Use
  Company Number: PHHY2014BR024391

PATIENT
  Sex: Female
  Weight: 60 kg

DRUGS (3)
  1. ACLASTA [Suspect]
     Indication: OSTEOPOROSIS
     Dosage: 5 MG, ONCE A YEAR
     Route: 042
     Dates: start: 2013
  2. EYEWASH                            /04472401/ [Concomitant]
     Dosage: UNK UKN, UNK
  3. CRESTOR [Concomitant]
     Indication: BLOOD CHOLESTEROL ABNORMAL
     Dosage: UNK, HALF TABLET, DAILY

REACTIONS (2)
  - Cataract [Recovered/Resolved]
  - Fear [Unknown]
